FAERS Safety Report 7898877-0 (Version None)
Quarter: 2011Q4

REPORT INFORMATION
  Report Type: 
  Country: None (occurrence: None)
  Receive Date: 20111107
  Receipt Date: 20111102
  Transmission Date: 20120403
  Serious: No
  Sender: FDA-Public Use
  Company Number: JP-PFIZER INC-2011261794

PATIENT
  Age: 65 Year
  Sex: Female

DRUGS (3)
  1. PREGABALIN [Suspect]
     Dosage: 75 MG, 2X/DAY
     Route: 048
     Dates: start: 20110909
  2. LOXONIN [Concomitant]
     Indication: ANALGESIC THERAPY
     Dosage: 100 MG, 1X/DAY
     Dates: start: 20110630
  3. PREGABALIN [Suspect]
     Indication: DIABETIC NEUROPATHY
     Dosage: 75 MG, 2X/DAY
     Route: 048
     Dates: start: 20110623, end: 20110721

REACTIONS (1)
  - DECREASED APPETITE [None]
